FAERS Safety Report 4524533-2 (Version None)
Quarter: 2005Q1

REPORT INFORMATION
  Report Type: 
  Country: None (occurrence: None)
  Receive Date: 20041117
  Receipt Date: 20040224
  Transmission Date: 20050727
  Serious: Yes (Hospitalization)
  Sender: FDA-Public Use
  Company Number: US-JNJFOC-20040105766

PATIENT
  Age: 73 Year
  Sex: Female
  Weight: 95.2554 kg

DRUGS (5)
  1. LEVAQUIN [Suspect]
     Dosage: 500 MG
     Dates: start: 20040121, end: 20040123
  2. ASPIRIN [Concomitant]
  3. ACCUPRIL [Concomitant]
  4. TRICOR [Concomitant]
  5. REMICADE [Concomitant]

REACTIONS (1)
  - DIARRHOEA [None]
